FAERS Safety Report 11862063 (Version 1)
Quarter: 2015Q4

REPORT INFORMATION
  Report Type: Spontaneous
  Country: US (occurrence: None)
  Receive Date: 20151222
  Receipt Date: 20151222
  Transmission Date: 20160305
  Serious: Yes (Hospitalization)
  Sender: FDA-Public Use
  Company Number: None

PATIENT
  Age: 61 Year
  Sex: Male
  Weight: 75 kg

DRUGS (14)
  1. PROTONIX [Concomitant]
     Active Substance: PANTOPRAZOLE SODIUM
  2. VITAMIN B1 [Concomitant]
     Active Substance: THIAMINE HYDROCHLORIDE
  3. RIFAXIMIN [Concomitant]
     Active Substance: RIFAXIMIN
  4. OXYCODONE [Concomitant]
     Active Substance: OXYCODONE
  5. ENSURE [Concomitant]
     Active Substance: AMINO ACIDS\DEXTROSE\ELECTROLYTES NOS\SOYBEAN OIL\VITAMINS
  6. MAGNESIUM [Concomitant]
     Active Substance: MAGNESIUM
  7. AMILORIDE [Concomitant]
     Active Substance: AMILORIDE
  8. HARVONI [Suspect]
     Active Substance: LEDIPASVIR\SOFOSBUVIR
     Indication: HEPATITIS C
     Dosage: 400/90 MG 1X DAILY ORAL
     Route: 048
     Dates: start: 20150619, end: 20151204
  9. LYRICA [Concomitant]
     Active Substance: PREGABALIN
  10. LACTULOSE. [Concomitant]
     Active Substance: LACTULOSE
  11. LASIX [Concomitant]
     Active Substance: FUROSEMIDE
  12. TEMAZEPAM. [Concomitant]
     Active Substance: TEMAZEPAM
  13. COREG [Concomitant]
     Active Substance: CARVEDILOL
  14. PHENERGAN [Concomitant]
     Active Substance: PROMETHAZINE HYDROCHLORIDE

REACTIONS (4)
  - Depression [None]
  - Crying [None]
  - Insomnia [None]
  - Suicidal ideation [None]

NARRATIVE: CASE EVENT DATE: 20150721
